FAERS Safety Report 4820948-3 (Version None)
Quarter: 2005Q4

REPORT INFORMATION
  Report Type: 
  Country: None (occurrence: None)
  Receive Date: 20051104
  Receipt Date: 20051026
  Transmission Date: 20060501
  Serious: Yes (Other)
  Sender: FDA-Public Use
  Company Number: ES-ROCHE-422544

PATIENT
  Age: 16 Year
  Sex: Male

DRUGS (1)
  1. ROACUTAN [Suspect]
     Indication: ACNE
     Route: 048
     Dates: start: 20050926, end: 20051019

REACTIONS (3)
  - GASTROINTESTINAL DISORDER [None]
  - LYMPHADENOPATHY [None]
  - STAPHYLOCOCCAL INFECTION [None]
